FAERS Safety Report 8182822-7 (Version None)
Quarter: 2012Q1

REPORT INFORMATION
  Report Type: 
  Country: None (occurrence: None)
  Receive Date: 20120305
  Receipt Date: 20120227
  Transmission Date: 20120608
  Serious: Yes (Other)
  Sender: FDA-Public Use
  Company Number: US-CELGENEUS-163-21880-12021754

PATIENT
  Sex: Female
  Weight: 52.21 kg

DRUGS (1)
  1. REVLIMID [Suspect]
     Dosage: 10 MILLIGRAM
     Route: 048
     Dates: start: 20120101

REACTIONS (5)
  - RASH [None]
  - FATIGUE [None]
  - ASTHENIA [None]
  - DRUG INTOLERANCE [None]
  - DIZZINESS [None]
